FAERS Safety Report 9027240 (Version 2)
Quarter: 2013Q1

REPORT INFORMATION
  Report Type: Report from Study
  Country: FR (occurrence: FR)
  Receive Date: 20130123
  Receipt Date: 20130215
  Transmission Date: 20140127
  Serious: Yes (Hospitalization)
  Sender: FDA-Public Use
  Company Number: FR-COVIDIEN/TYCO HEALTHCARE/MALLINCKRODT-T201300157

PATIENT
  Age: 54 Year
  Sex: Female
  Weight: 60 kg

DRUGS (9)
  1. EXALGO EXTENDED RELEASE [Suspect]
     Indication: CANCER PAIN
     Dosage: 56 MG, IN 1 DAY
     Route: 048
     Dates: start: 20010222, end: 20010226
  2. EXALGO EXTENDED RELEASE [Suspect]
     Dosage: 72 MG, IN 1 DAY
     Route: 048
     Dates: start: 20001228, end: 20010124
  3. EXALGO EXTENDED RELEASE [Suspect]
     Dosage: 96 MG, IN 1 DAY
     Route: 048
     Dates: start: 20010124, end: 20010222
  4. BROMAZEPAM [Concomitant]
     Dosage: 0.5 MG, IN 1 DAY
     Route: 048
  5. AMITRIPTYLINE [Concomitant]
     Dosage: , IN 1 DAY
     Route: 048
  6. CELEBREX [Concomitant]
     Dosage: , IN 1 DAY
     Route: 048
  7. GABAPENTIN [Concomitant]
     Dosage: , IN 1 DAY
     Route: 048
  8. OMEPRAZOLE [Concomitant]
     Dosage: 20 MG, IN 1 DAY
     Route: 048
  9. CASCARA DRY EXTRACT [Concomitant]
     Dosage: , IN 1 DAY
     Route: 048

REACTIONS (3)
  - Pain [Recovered/Resolved]
  - Confusional state [Recovered/Resolved]
  - Hallucination [Recovered/Resolved]
